FAERS Safety Report 5196723-X (Version None)
Quarter: 2006Q4

REPORT INFORMATION
  Report Type: 
  Country: None (occurrence: None)
  Receive Date: 20061228
  Receipt Date: 20061228
  Transmission Date: 20070319
  Serious: No
  Sender: FDA-Public Use
  Company Number: None

PATIENT

DRUGS (3)
  1. ZEMURON [Suspect]
     Indication: INDUCTION OF ANAESTHESIA
     Dates: start: 20061115, end: 20061215
  2. ZEMURON [Suspect]
     Indication: NERVE BLOCK
     Dates: start: 20061115, end: 20061215
  3. ZEMURON [Suspect]

REACTIONS (2)
  - DRUG INEFFECTIVE [None]
  - PHARMACEUTICAL PRODUCT COMPLAINT [None]
